FAERS Safety Report 6293334-X (Version None)
Quarter: 2009Q3

REPORT INFORMATION
  Report Type: 
  Country: None (occurrence: None)
  Receive Date: 20090731
  Receipt Date: 20090723
  Transmission Date: 20100115
  Serious: Yes (Hospitalization)
  Sender: FDA-Public Use
  Company Number: PHHY2009FR30947

PATIENT
  Sex: Female

DRUGS (5)
  1. TEGRETOL [Suspect]
     Indication: EPILEPSY
     Dosage: 200 MG DAILY
     Dates: end: 20081013
  2. TERALITHE [Suspect]
     Indication: BIPOLAR I DISORDER
     Dosage: UNK
     Dates: start: 19700101, end: 20081013
  3. IMOVANE [Concomitant]
     Indication: INSOMNIA
  4. LEVOTHYROX [Concomitant]
     Indication: HYPOTHYROIDISM
  5. TRANSIPEG [Concomitant]
     Indication: CONSTIPATION

REACTIONS (5)
  - DEHYDRATION [None]
  - INCREASED BRONCHIAL SECRETION [None]
  - NEPHROGENIC DIABETES INSIPIDUS [None]
  - PYREXIA [None]
  - SOMNOLENCE [None]
